FAERS Safety Report 8407727-5 (Version None)
Quarter: 2012Q2

REPORT INFORMATION
  Report Type: 
  Country: None (occurrence: None)
  Receive Date: 20120604
  Receipt Date: 20120525
  Transmission Date: 20120825
  Serious: Yes (Hospitalization)
  Sender: FDA-Public Use
  Company Number: CA-GLAXOSMITHKLINE-A0929349A

PATIENT
  Sex: Female

DRUGS (7)
  1. XELODA [Suspect]
     Indication: BREAST CANCER METASTATIC
     Dosage: 500MG UNKNOWN
     Route: 065
     Dates: end: 20110719
  2. AREDIA [Concomitant]
     Route: 042
  3. HERCEPTIN [Concomitant]
     Route: 042
  4. ZOLADEX [Concomitant]
     Route: 058
  5. AROMASIN [Concomitant]
  6. TYKERB [Suspect]
     Indication: BREAST CANCER METASTATIC
     Dosage: 1250MG PER DAY
     Route: 048
     Dates: start: 20110521
  7. SEROQUEL [Concomitant]

REACTIONS (7)
  - DIZZINESS [None]
  - AMNESIA [None]
  - ABDOMINAL PAIN [None]
  - ENTEROCOLITIS [None]
  - FATIGUE [None]
  - NEOPLASM MALIGNANT [None]
  - METASTASIS [None]
